FAERS Safety Report 8029121-1 (Version None)
Quarter: 2012Q1

REPORT INFORMATION
  Report Type: 
  Country: None (occurrence: None)
  Receive Date: 20120106
  Receipt Date: 20111226
  Transmission Date: 20120608
  Serious: Yes (Hospitalization, Other)
  Sender: FDA-Public Use
  Company Number: PHHY2011JP109595

PATIENT
  Age: 14 Year
  Sex: Female

DRUGS (6)
  1. MIZORIBINE [Concomitant]
     Dosage: UNK UKN, UNK
  2. PREDNISONE TAB [Concomitant]
     Dosage: 60 MG/DAY
  3. DIOVAN [Suspect]
  4. DIURETICS [Concomitant]
     Dosage: UNK UKN, UNK
  5. NEORAL [Suspect]
     Indication: NEPHROTIC SYNDROME
  6. ALBUMIN (HUMAN) [Concomitant]
     Dosage: UNK UKN, UNK

REACTIONS (8)
  - NASOPHARYNGITIS [None]
  - RENAL IMPAIRMENT [None]
  - OLIGURIA [None]
  - KIDNEY FIBROSIS [None]
  - NEPHROTIC SYNDROME [None]
  - GLOMERULONEPHRITIS MINIMAL LESION [None]
  - RENAL FAILURE ACUTE [None]
  - GLOMERULAR FILTRATION RATE DECREASED [None]
